FAERS Safety Report 12595631 (Version 1)
Quarter: 2016Q3

REPORT INFORMATION
  Report Type: Report from Study
  Country: US (occurrence: US)
  Receive Date: 20160726
  Receipt Date: 20160726
  Transmission Date: 20161109
  Serious: No
  Sender: FDA-Public Use
  Company Number: US-AMGEN-USASL2016011971

PATIENT
  Age: 57 Year
  Sex: Male

DRUGS (1)
  1. KYPROLIS [Suspect]
     Active Substance: CARFILZOMIB
     Indication: PLASMA CELL MYELOMA
     Dosage: UNK, UNK
     Route: 065
     Dates: start: 201508, end: 201601

REACTIONS (5)
  - Drug effect decreased [Unknown]
  - Back pain [Unknown]
  - Pharyngitis streptococcal [Recovering/Resolving]
  - Odynophagia [Unknown]
  - Disease progression [Unknown]

NARRATIVE: CASE EVENT DATE: 201601
